FAERS Safety Report 25082414 (Version 2)
Quarter: 2025Q2

REPORT INFORMATION
  Report Type: Report from Study
  Country: US (occurrence: US)
  Receive Date: 20250317
  Receipt Date: 20250404
  Transmission Date: 20250717
  Serious: Yes (Death, Hospitalization)
  Sender: RECORDATI
  Company Number: US-ORPHANEU-2025001706

PATIENT
  Age: 60 Year
  Sex: Female
  Weight: 91.156 kg

DRUGS (5)
  1. ISTURISA [Suspect]
     Active Substance: OSILODROSTAT PHOSPHATE
     Indication: Cushing^s syndrome
     Dosage: 2 MG, BID (1 MG TABLET)
     Route: 048
     Dates: end: 20250219
  2. ISTURISA [Suspect]
     Active Substance: OSILODROSTAT PHOSPHATE
     Dosage: 2 MG, BID (1 MG TABLET)
     Route: 048
     Dates: start: 20250220, end: 20250220
  3. ISTURISA [Suspect]
     Active Substance: OSILODROSTAT PHOSPHATE
     Dosage: 2 MG, BID (1 MG TABLET)
     Route: 048
     Dates: start: 2025, end: 2025
  4. ISTURISA [Suspect]
     Active Substance: OSILODROSTAT PHOSPHATE
     Dosage: 10 MG, BID (5 MG TABLET)
     Route: 048
     Dates: start: 2025, end: 2025
  5. METOPROLOL TARTRATE [Concomitant]
     Active Substance: METOPROLOL TARTRATE
     Indication: Product used for unknown indication
     Dosage: 25 MG, BID (TABLET)
     Route: 048
     Dates: start: 20250220

REACTIONS (2)
  - Death [Fatal]
  - Thrombocytopenia [Not Recovered/Not Resolved]

NARRATIVE: CASE EVENT DATE: 20250228
